FAERS Safety Report 11906729 (Version 1)
Quarter: 2016Q1

REPORT INFORMATION
  Report Type: Spontaneous
  Country: US (occurrence: None)
  Receive Date: 20160108
  Receipt Date: 20160108
  Transmission Date: 20160526
  Serious: Yes (Hospitalization)
  Sender: FDA-Public Use
  Company Number: None

PATIENT
  Age: 68 Year
  Sex: Female
  Weight: 44.3 kg

DRUGS (1)
  1. CISPLATIN. [Suspect]
     Active Substance: CISPLATIN
     Dates: end: 20151221

REACTIONS (5)
  - Hyponatraemia [None]
  - Aspartate aminotransferase increased [None]
  - Febrile neutropenia [None]
  - Dehydration [None]
  - Pneumonia [None]

NARRATIVE: CASE EVENT DATE: 20151223
